FAERS Safety Report 9956751 (Version 1)
Quarter: 2014Q1

REPORT INFORMATION
  Report Type: Report from Study
  Country: US (occurrence: US)
  Receive Date: 20140304
  Receipt Date: 20140304
  Transmission Date: 20141002
  Serious: No
  Sender: FDA-Public Use
  Company Number: US-ABBVIE-13P-163-1096277-00

PATIENT
  Age: 57 Year
  Sex: Female
  Weight: 85.35 kg

DRUGS (6)
  1. HUMIRA [Suspect]
     Indication: PSORIASIS
     Route: 058
     Dates: start: 20120913, end: 20120913
  2. HUMIRA [Suspect]
     Route: 058
     Dates: start: 20120920
  3. OMEGA 3 [Concomitant]
     Indication: ROUTINE HEALTH MAINTENANCE
  4. VITAMIN D [Concomitant]
     Indication: VITAMIN SUPPLEMENTATION
  5. PROBIOTICS [Concomitant]
     Indication: ROUTINE HEALTH MAINTENANCE
  6. SYNTHROID [Concomitant]
     Indication: HYPOTHYROIDISM

REACTIONS (2)
  - Pertussis [Recovered/Resolved]
  - Psoriasis [Not Recovered/Not Resolved]
